FAERS Safety Report 16729931 (Version 1)
Quarter: 2019Q4

REPORT INFORMATION
  Report Type: Spontaneous
  Country: US (occurrence: US)
  Receive Date: 20190821
  Receipt Date: 20190821
  Transmission Date: 20200122
  Serious: No
  Sender: FDA-Public Use
  Company Number: None

PATIENT
  Age: 29 Year
  Sex: Female
  Weight: 78.75 kg

DRUGS (4)
  1. SYNTHROID [Suspect]
     Active Substance: LEVOTHYROXINE SODIUM
     Indication: HYPOTHYROIDISM
     Dosage: ?          QUANTITY:30 TABLET(S);?
     Route: 048
     Dates: start: 20190430, end: 20190731
  2. FLASP [Concomitant]
  3. TRESIBA [Concomitant]
     Active Substance: INSULIN DEGLUDEC
  4. BUPROPION. [Concomitant]
     Active Substance: BUPROPION

REACTIONS (7)
  - Temperature intolerance [None]
  - Dysphonia [None]
  - Fatigue [None]
  - Muscular weakness [None]
  - Pain [None]
  - Arthralgia [None]
  - Irritability [None]

NARRATIVE: CASE EVENT DATE: 20190506
